FAERS Safety Report 20534505 (Version 6)
Quarter: 2024Q4

REPORT INFORMATION
  Report Type: Spontaneous
  Country: US (occurrence: US)
  Receive Date: 20220302
  Receipt Date: 20241106
  Transmission Date: 20250115
  Serious: Yes (Disabling, Other)
  Sender: ORGANON
  Company Number: US-ORGANON-O2202USA002284

PATIENT
  Sex: Male
  Weight: 126.98 kg

DRUGS (2)
  1. SINGULAIR [Suspect]
     Active Substance: MONTELUKAST SODIUM
     Indication: Asthma
     Dosage: 10 MILLIGRAM, QD (ON A DAILY BASIS)
     Route: 048
     Dates: start: 2001, end: 2011
  2. SINGULAIR [Suspect]
     Active Substance: MONTELUKAST SODIUM
     Dosage: 10 MILLIGRAM, QD (ON A DAILY BASIS)
     Route: 048
     Dates: start: 2011, end: 2016

REACTIONS (22)
  - Neuropsychological symptoms [Not Recovered/Not Resolved]
  - Obsessive-compulsive disorder [Not Recovered/Not Resolved]
  - Bipolar II disorder [Recovering/Resolving]
  - Intentional self-injury [Not Recovered/Not Resolved]
  - Anxiety [Not Recovered/Not Resolved]
  - Depression [Not Recovered/Not Resolved]
  - Bipolar disorder [Unknown]
  - Aggression [Not Recovered/Not Resolved]
  - Hallucination [Not Recovered/Not Resolved]
  - Suicidal ideation [Not Recovered/Not Resolved]
  - Bulimia nervosa [Not Recovered/Not Resolved]
  - Decreased appetite [Not Recovered/Not Resolved]
  - Attention deficit hyperactivity disorder [Not Recovered/Not Resolved]
  - Sleep disorder [Recovering/Resolving]
  - Dissociation [Recovering/Resolving]
  - Emotional distress [Recovering/Resolving]
  - Incorrect dose administered [Unknown]
  - Wrong dosage form [Unknown]
  - Product prescribing issue [Unknown]
  - Eating disorder [Unknown]
  - Obsessive thoughts [Unknown]
  - Anxiety disorder [Unknown]

NARRATIVE: CASE EVENT DATE: 20010101
